FAERS Safety Report 16696144 (Version 1)
Quarter: 2019Q3

REPORT INFORMATION
  Report Type: Spontaneous
  Country: DE (occurrence: US)
  Receive Date: 20190813
  Receipt Date: 20190813
  Transmission Date: 20191004
  Serious: No
  Sender: FDA-Public Use
  Company Number: DE-AUROBINDO-AUR-APL-2018-056743

PATIENT
  Age: 33 Year
  Sex: Male

DRUGS (1)
  1. LEVOFLOXACIN FILMCOATED TABLET [Suspect]
     Active Substance: LEVOFLOXACIN
     Indication: PROSTATITIS
     Dosage: UNK
     Route: 065

REACTIONS (4)
  - Depression [Unknown]
  - Dizziness [Unknown]
  - Panic attack [Not Recovered/Not Resolved]
  - Anxiety disorder [Not Recovered/Not Resolved]
